FAERS Safety Report 9232162 (Version 4)
Quarter: 2014Q1

REPORT INFORMATION
  Report Type: Spontaneous
  Country: US (occurrence: US)
  Receive Date: 20130415
  Receipt Date: 20140321
  Transmission Date: 20141002
  Serious: Yes (Hospitalization)
  Sender: FDA-Public Use
  Company Number: US-PFIZER INC-2013116446

PATIENT
  Age: 53 Year
  Sex: Female
  Weight: 67.12 kg

DRUGS (5)
  1. LYRICA [Suspect]
     Indication: GOUT
     Dosage: 300 MG, (THREE TO FOUR TIMES A DAY)
     Route: 048
  2. LYRICA [Suspect]
     Indication: MULTIPLE SCLEROSIS
  3. LISINOPRIL [Concomitant]
     Indication: HYPERTENSION
     Dosage: 10 MG, 1X/DAY
     Route: 048
  4. MORPHINE [Concomitant]
     Indication: MULTIPLE SCLEROSIS
     Dosage: 50 MG, UNK
     Route: 048
  5. PERCOCET [Concomitant]
     Indication: ARTHRITIS
     Dosage: UNK (THREE TO FOUR TIMES DAILY)
     Route: 048

REACTIONS (3)
  - Myocardial infarction [Unknown]
  - Nausea [Unknown]
  - Malaise [Unknown]
